FAERS Safety Report 13640970 (Version 1)
Quarter: 2017Q2

REPORT INFORMATION
  Report Type: Spontaneous
  Country: US (occurrence: US)
  Receive Date: 20170612
  Receipt Date: 20170612
  Transmission Date: 20170830
  Serious: No
  Sender: FDA-Public Use
  Company Number: US-TEVA-764873ACC

PATIENT
  Sex: Male

DRUGS (1)
  1. ENOXAPARIN [Suspect]
     Active Substance: ENOXAPARIN
     Indication: EPIDURAL ANAESTHESIA
     Dosage: DOSE STRENGTH:  40 MG/0.4 ML
     Route: 065

REACTIONS (1)
  - Rash erythematous [Unknown]
